FAERS Safety Report 12977574 (Version 1)
Quarter: 2016Q4

REPORT INFORMATION
  Report Type: Spontaneous
  Country: ZA (occurrence: ZA)
  Receive Date: 20161128
  Receipt Date: 20161128
  Transmission Date: 20170207
  Serious: Yes (Other)
  Sender: FDA-Public Use
  Company Number: ZA-LUPIN PHARMACEUTICALS INC.-2016-05213

PATIENT
  Age: 55 Year
  Sex: Female

DRUGS (4)
  1. AMLOC [Suspect]
     Active Substance: AMLODIPINE BESYLATE
     Indication: PRODUCT USED FOR UNKNOWN INDICATION
     Route: 048
     Dates: start: 20161017, end: 20161020
  2. TRUSTAN [Suspect]
     Active Substance: ESOMEPRAZOLE
     Indication: ACID PEPTIC DISEASE
     Route: 048
     Dates: start: 20160929, end: 20161027
  3. BILOCOR [Suspect]
     Active Substance: BISOPROLOL FUMARATE
     Indication: PRODUCT USED FOR UNKNOWN INDICATION
     Route: 048
     Dates: start: 20160929
  4. VALSARTAN AND HYDROCHLOROTHIAZIDE [Suspect]
     Active Substance: HYDROCHLOROTHIAZIDE\VALSARTAN
     Indication: RENIN-ANGIOTENSIN SYSTEM INHIBITION
     Dosage: 160/12.5 MG
     Route: 048
     Dates: start: 20161002

REACTIONS (2)
  - Peripheral swelling [Unknown]
  - Cardiac failure [Unknown]

NARRATIVE: CASE EVENT DATE: 20161114
